FAERS Safety Report 12382715 (Version 2)
Quarter: 2016Q3

REPORT INFORMATION
  Report Type: Report from Study
  Country: DE (occurrence: DE)
  Receive Date: 20160518
  Receipt Date: 20160811
  Transmission Date: 20161109
  Serious: Yes (Other)
  Sender: FDA-Public Use
  Company Number: DE-INCYTE CORPORATION-2014IN000902

PATIENT
  Age: 54 Year
  Sex: Female
  Weight: 70.5 kg

DRUGS (22)
  1. INCB018424 [Suspect]
     Active Substance: RUXOLITINIB
     Dosage: 30 MG, QD (TWICE)
     Route: 048
     Dates: start: 20140730, end: 20140909
  2. INCB018424 [Suspect]
     Active Substance: RUXOLITINIB
     Dosage: 25 MG, QD (TWICE)
     Route: 048
     Dates: start: 20140726, end: 20140729
  3. ASPIRIN. [Concomitant]
     Active Substance: ASPIRIN
     Dosage: 100 MG, QOD
     Route: 065
     Dates: start: 20100412, end: 20131217
  4. LITALIR [Concomitant]
     Active Substance: HYDROXYUREA
     Dosage: 1 DF, TID (1-1-1)
     Route: 065
     Dates: start: 20140610, end: 20140627
  5. INCB018424 [Suspect]
     Active Substance: RUXOLITINIB
     Indication: MYELOFIBROSIS
     Dosage: 40 MG, QD (TWICE)
     Route: 048
     Dates: start: 20121107, end: 20140606
  6. PARACODINE [Concomitant]
     Active Substance: DIHYDROCODEINE BITARTRATE
     Indication: PRODUCT USED FOR UNKNOWN INDICATION
     Dosage: UNK, PRN
     Route: 065
     Dates: start: 20140627, end: 20140707
  7. INCB018424 [Suspect]
     Active Substance: RUXOLITINIB
     Dosage: 30 MG, QD (TWICE)
     Route: 048
     Dates: start: 20150416, end: 20150428
  8. ASPIRIN. [Concomitant]
     Active Substance: ASPIRIN
     Route: 065
  9. ASPIRIN. [Concomitant]
     Active Substance: ASPIRIN
     Indication: PRODUCT USED FOR UNKNOWN INDICATION
     Dosage: 100 MG, QOD
     Route: 065
     Dates: start: 20100412, end: 20131217
  10. LITALIR [Concomitant]
     Active Substance: HYDROXYUREA
     Dosage: 1 DF, QD( 1-0-0 )
     Route: 065
     Dates: start: 20140708, end: 20140715
  11. INCB018424 [Suspect]
     Active Substance: RUXOLITINIB
     Dosage: 10 MG, QD (TWICE)
     Route: 048
     Dates: start: 20140716, end: 20140719
  12. INCB018424 [Suspect]
     Active Substance: RUXOLITINIB
     Dosage: 15 MG, QD (TWICE)
     Route: 048
     Dates: start: 20140720, end: 20140722
  13. INCB018424 [Suspect]
     Active Substance: RUXOLITINIB
     Dosage: 30 MG, QD (TWICE)
     Route: 048
     Dates: start: 20150506, end: 20150526
  14. INCB018424 [Suspect]
     Active Substance: RUXOLITINIB
     Dosage: 40 MG, QD (TWICE)
     Route: 048
     Dates: start: 20150527
  15. LITALIR [Concomitant]
     Active Substance: HYDROXYUREA
     Dosage: 1 DF, BID (1-0-1)
     Route: 065
     Dates: start: 20140628, end: 20140707
  16. INCB018424 [Suspect]
     Active Substance: RUXOLITINIB
     Dosage: 20 MG, QD (TWICE)
     Route: 048
     Dates: start: 20140723, end: 20140725
  17. INCB018424 [Suspect]
     Active Substance: RUXOLITINIB
     Dosage: 25 MG, QD (TWICE)
     Route: 048
     Dates: start: 20140910, end: 20140916
  18. ALLOPURINOL. [Concomitant]
     Active Substance: ALLOPURINOL
     Indication: PRODUCT USED FOR UNKNOWN INDICATION
     Dosage: 1 OT, UNK
     Route: 065
     Dates: start: 20121113
  19. METRONIDAZOLE. [Concomitant]
     Active Substance: METRONIDAZOLE
     Indication: PRODUCT USED FOR UNKNOWN INDICATION
     Dosage: 1 DF, QID
     Route: 065
     Dates: start: 20140606, end: 20140611
  20. LITALIR [Concomitant]
     Active Substance: HYDROXYUREA
     Indication: PRODUCT USED FOR UNKNOWN INDICATION
     Dosage: 1 OT, QD
     Route: 065
     Dates: start: 20140610, end: 20140715
  21. INCB018424 [Suspect]
     Active Substance: RUXOLITINIB
     Dosage: 5 MG, QD (ONCE)
     Route: 048
     Dates: start: 20140708, end: 20140715
  22. INCB018424 [Suspect]
     Active Substance: RUXOLITINIB
     Dosage: 35 MG, QD (TWICE)
     Route: 048
     Dates: start: 20150429, end: 20150506

REACTIONS (5)
  - Lymph node abscess [Recovered/Resolved]
  - Thrombocytopenia [Not Recovered/Not Resolved]
  - Blood lactate dehydrogenase increased [Not Recovered/Not Resolved]
  - Oral disorder [Recovered/Resolved]
  - White blood cell count increased [Not Recovered/Not Resolved]

NARRATIVE: CASE EVENT DATE: 20130903
